FAERS Safety Report 15351228 (Version 2)
Quarter: 2019Q1

REPORT INFORMATION
  Report Type: Spontaneous
  Country: US (occurrence: US)
  Receive Date: 20180905
  Receipt Date: 20190306
  Transmission Date: 20190417
  Serious: No
  Sender: FDA-Public Use
  Company Number: US-PFIZER INC-2018356463

PATIENT
  Age: 80 Year
  Sex: Female
  Weight: 61.22 kg

DRUGS (11)
  1. GRAMICIDIN [Suspect]
     Active Substance: GRAMICIDIN
     Dosage: UNK
  2. LIDOCAINE HCL [Suspect]
     Active Substance: LIDOCAINE HYDROCHLORIDE
     Dosage: UNK
  3. NEOMYCIN SULFATE/POLYMYXIN B SULFATE [Suspect]
     Active Substance: NEOMYCIN SULFATE\POLYMYXIN B SULFATE
     Dosage: UNK
  4. NEOMYCIN. [Suspect]
     Active Substance: NEOMYCIN
     Dosage: UNK
  5. NEOMYCIN SULFATE. [Suspect]
     Active Substance: NEOMYCIN SULFATE
     Dosage: UNK
  6. BACITRACIN ZINC. [Suspect]
     Active Substance: BACITRACIN ZINC
     Dosage: UNK
  7. GABAPENTIN. [Suspect]
     Active Substance: GABAPENTIN
     Dosage: UNK
  8. DAYPRO [Suspect]
     Active Substance: OXAPROZIN
     Dosage: UNK
  9. BACITRACIN. [Suspect]
     Active Substance: BACITRACIN
     Dosage: UNK
  10. LORACARBEF [Suspect]
     Active Substance: LORACARBEF
     Dosage: UNK
  11. POLYMYXIN B SULFATE. [Suspect]
     Active Substance: POLYMYXIN B SULFATE
     Dosage: UNK

REACTIONS (1)
  - Drug hypersensitivity [Unknown]
